FAERS Safety Report 23382057 (Version 1)
Quarter: 2024Q1

REPORT INFORMATION
  Report Type: Spontaneous
  Country: CN (occurrence: None)
  Receive Date: 20240109
  Receipt Date: 20240109
  Transmission Date: 20240410
  Serious: Yes (Other)
  Sender: FDA-Public Use
  Company Number: CN-ROCHE-3485775

PATIENT
  Sex: Female
  Weight: 52 kg

DRUGS (13)
  1. TRASTUZUMAB [Suspect]
     Active Substance: TRASTUZUMAB
     Indication: Breast cancer
     Dosage: FIRST DOSE 416MG (D1, 8MG/KG),MAINTENANCE DOSE 312MG (D1, 6MG/KG)
     Route: 065
     Dates: start: 20160805, end: 20160828
  2. TRASTUZUMAB [Suspect]
     Active Substance: TRASTUZUMAB
     Dosage: D1
     Route: 065
     Dates: start: 201609, end: 201611
  3. TRASTUZUMAB [Suspect]
     Active Substance: TRASTUZUMAB
     Dosage: D1,6MG/KG
     Route: 065
     Dates: start: 201612, end: 201702
  4. PERTUZUMAB [Suspect]
     Active Substance: PERTUZUMAB
     Indication: Breast cancer
     Dosage: FIRST DOSE 840MG (D1),MAINTENANCE DOSE 420MG (D1)
     Route: 065
     Dates: start: 201609, end: 201611
  5. ADO-TRASTUZUMAB EMTANSINE [Suspect]
     Active Substance: ADO-TRASTUZUMAB EMTANSINE
     Indication: Breast cancer
     Dosage: 2.9MG/KG, WEIGHT AT THERAPY WITH TRASTUZUMAB EMTANSINE: 55KG, BODY SURFACE AREA:1.56M2, HEIGHT: 160C
     Route: 065
     Dates: start: 20170406
  6. EPIRUBICIN [Concomitant]
     Active Substance: EPIRUBICIN
     Indication: Breast cancer
     Dosage: D1,85MG/M2
     Dates: start: 20160513, end: 20160715
  7. CYCLOPHOSPHAMIDE [Concomitant]
     Active Substance: CYCLOPHOSPHAMIDE
     Indication: Breast cancer
     Dosage: D1,523MG/M2
     Dates: start: 20160513, end: 20160715
  8. DOCETAXEL [Concomitant]
     Active Substance: DOCETAXEL\DOCETAXEL ANHYDROUS
     Indication: Breast cancer
     Dosage: D1,85MG/M2
     Dates: start: 20160805, end: 20160828
  9. VINORELBINE [Concomitant]
     Active Substance: VINORELBINE TARTRATE
     Indication: Breast cancer
     Dosage: D1,D8
     Dates: start: 201609, end: 201611
  10. CARBOPLATIN [Concomitant]
     Active Substance: CARBOPLATIN
     Indication: Breast cancer
     Dosage: D1
     Dates: start: 201609, end: 201611
  11. GEMCITABINE [Concomitant]
     Active Substance: GEMCITABINE
     Indication: Breast cancer
     Dosage: D1,D8,915MG/M2
     Dates: start: 201612, end: 201702
  12. CISPLATIN [Concomitant]
     Active Substance: CISPLATIN
     Indication: Breast cancer
     Dosage: D1-D3,72MG/M2
     Dates: start: 201612, end: 201702
  13. EVEROLIMUS [Concomitant]
     Active Substance: EVEROLIMUS
     Indication: Breast cancer
     Dosage: 5 MG/DAY AND 10 MG/DAY ALTERNATELY
     Route: 048
     Dates: start: 201612, end: 201702

REACTIONS (4)
  - Disease progression [Recovered/Resolved]
  - Breast cancer metastatic [Unknown]
  - Metastases to lymph nodes [Unknown]
  - Drug resistance [Unknown]

NARRATIVE: CASE EVENT DATE: 20160914
